FAERS Safety Report 10231427 (Version 2)
Quarter: 2014Q2

REPORT INFORMATION
  Report Type: Report from Study
  Country: IN (occurrence: IN)
  Receive Date: 20140611
  Receipt Date: 20140630
  Transmission Date: 20141212
  Serious: Yes (Other)
  Sender: FDA-Public Use
  Company Number: IN-ROCHE-1415719

PATIENT
  Age: 42 Year
  Sex: Male

DRUGS (2)
  1. EXXURA [Suspect]
     Indication: HEPATITIS C
     Route: 058
     Dates: start: 20131123
  2. COPEGUS [Suspect]
     Indication: HEPATITIS C
     Route: 048
     Dates: start: 20131123

REACTIONS (5)
  - Eye irritation [Not Recovered/Not Resolved]
  - Vision blurred [Not Recovered/Not Resolved]
  - Decreased appetite [Recovered/Resolved]
  - Irritability [Not Recovered/Not Resolved]
  - Weight decreased [Recovered/Resolved]
